FAERS Safety Report 10081938 (Version 6)
Quarter: 2015Q1

REPORT INFORMATION
  Report Type: Spontaneous
  Country: JP (occurrence: JP)
  Receive Date: 20140416
  Receipt Date: 20150127
  Transmission Date: 20150720
  Serious: Yes (Hospitalization, Other)
  Sender: FDA-Public Use
  Company Number: JP-GLAXOSMITHKLINE-B0985552A

PATIENT
  Age: 48 Year
  Sex: Male

DRUGS (1)
  1. VALACICLOVIR HYDROCHLORIDE [Suspect]
     Active Substance: VALACYCLOVIR HYDROCHLORIDE
     Indication: ORAL HERPES
     Dosage: 500 MG, QD
     Route: 048
     Dates: start: 20140406, end: 20140408

REACTIONS (17)
  - Mood altered [Not Recovered/Not Resolved]
  - Hallucination, auditory [Not Recovered/Not Resolved]
  - Altered state of consciousness [Recovered/Resolved]
  - Logorrhoea [Not Recovered/Not Resolved]
  - Hyperkinesia [Not Recovered/Not Resolved]
  - Nervous system disorder [Unknown]
  - Dysarthria [Not Recovered/Not Resolved]
  - Panic reaction [Not Recovered/Not Resolved]
  - Elevated mood [Not Recovered/Not Resolved]
  - Screaming [Not Recovered/Not Resolved]
  - Abnormal behaviour [Not Recovered/Not Resolved]
  - Poriomania [Unknown]
  - Hallucination [Not Recovered/Not Resolved]
  - Toxicity to various agents [Unknown]
  - Aggression [Unknown]
  - Logorrhoea [Unknown]
  - Toxic encephalopathy [Unknown]

NARRATIVE: CASE EVENT DATE: 201404
